FAERS Safety Report 16181787 (Version 1)
Quarter: 2019Q2

REPORT INFORMATION
  Report Type: Spontaneous
  Country: US (occurrence: US)
  Receive Date: 20190410
  Receipt Date: 20190410
  Transmission Date: 20190711
  Serious: Yes (Other)
  Sender: FDA-Public Use
  Company Number: US-009507513-1904USA003380

PATIENT
  Age: 62 Year
  Sex: Female
  Weight: 83 kg

DRUGS (3)
  1. FOSAMAX [Suspect]
     Active Substance: ALENDRONATE SODIUM
     Indication: OSTEOPENIA
     Dosage: 70 MILLIGRAM, QD
     Route: 048
     Dates: start: 2013, end: 201805
  2. SINGULAIR [Concomitant]
     Active Substance: MONTELUKAST SODIUM
     Indication: SEASONAL ALLERGY
     Dosage: 10 MILLIGRAM, QD (ONCE A DAY BY MOUTH)
     Route: 048
     Dates: start: 2004
  3. LYRICA [Concomitant]
     Active Substance: PREGABALIN
     Indication: PHANTOM LIMB SYNDROME
     Dosage: 300 MILLIGRAM, BID, ONE IN THE MORNING AND ONE AT NIGHT
     Route: 048
     Dates: start: 200808

REACTIONS (2)
  - Drug ineffective [Unknown]
  - Femur fracture [Unknown]

NARRATIVE: CASE EVENT DATE: 20180503
